FAERS Safety Report 4971743-6 (Version None)
Quarter: 2006Q2

REPORT INFORMATION
  Report Type: 
  Country: None (occurrence: None)
  Receive Date: 20060406
  Receipt Date: 20060323
  Transmission Date: 20061013
  Serious: Yes (Hospitalization, Disabling)
  Sender: FDA-Public Use
  Company Number: CLOF-10187

PATIENT
  Age: 7 Year
  Sex: Female

DRUGS (8)
  1. CLOFARABINE [Suspect]
     Indication: ACUTE MYELOID LEUKAEMIA
     Dosage: 40 MG/M2 DAILY IV
     Route: 042
     Dates: start: 20051202, end: 20051203
  2. CLOFARABINE [Suspect]
     Indication: ACUTE MYELOID LEUKAEMIA
     Dosage: 30 MG/M2 DAILY IV
     Route: 042
     Dates: start: 20051206, end: 20051206
  3. CYTARABINE [Suspect]
     Indication: ACUTE MYELOID LEUKAEMIA
     Dosage: 1 G DAILY IV
     Route: 042
     Dates: start: 20051201, end: 20051203
  4. ADALAT [Concomitant]
  5. SYNERCID [Concomitant]
  6. VANCOMYCIN [Concomitant]
  7. ZOVIRAX [Concomitant]
  8. TEQUIN [Concomitant]

REACTIONS (8)
  - CAPILLARY LEAK SYNDROME [None]
  - DIARRHOEA [None]
  - NAUSEA [None]
  - PALMAR-PLANTAR ERYTHRODYSAESTHESIA SYNDROME [None]
  - PALPITATIONS [None]
  - PLEURAL EFFUSION [None]
  - RENAL FAILURE [None]
  - VOMITING [None]
